FAERS Safety Report 15718302 (Version 9)
Quarter: 2019Q2

REPORT INFORMATION
  Report Type: Report from Study
  Country: DE (occurrence: DE)
  Receive Date: 20181213
  Receipt Date: 20190403
  Transmission Date: 20190711
  Serious: Yes (Hospitalization)
  Sender: FDA-Public Use
  Company Number: DE-KYOWAKIRIN-2018BKK005399

PATIENT

DRUGS (6)
  1. BUROSUMAB [Suspect]
     Active Substance: BUROSUMAB
     Indication: HEREDITARY HYPOPHOSPHATAEMIC RICKETS
     Dosage: 20 MG
     Route: 058
     Dates: start: 20190327
  2. BUROSUMAB [Suspect]
     Active Substance: BUROSUMAB
     Dosage: 19 MG
     Route: 058
     Dates: start: 20181107
  3. BUROSUMAB [Suspect]
     Active Substance: BUROSUMAB
     Dosage: 19 MG
     Route: 058
     Dates: start: 20181107
  4. BUROSUMAB [Suspect]
     Active Substance: BUROSUMAB
     Dosage: 19 MG
     Route: 058
     Dates: start: 20181107
  5. BUROSUMAB [Suspect]
     Active Substance: BUROSUMAB
     Dosage: 19 MG
     Route: 058
     Dates: start: 20181107
  6. BUROSUMAB [Suspect]
     Active Substance: BUROSUMAB
     Dosage: 18 MG
     Route: 058
     Dates: start: 20180803, end: 2018

REACTIONS (2)
  - Incorrect dose administered [Recovered/Resolved]
  - Knee operation [Recovered/Resolved]

NARRATIVE: CASE EVENT DATE: 20180803
